FAERS Safety Report 6370795-9 (Version None)
Quarter: 2009Q3

REPORT INFORMATION
  Report Type: 
  Country: None (occurrence: None)
  Receive Date: 20090923
  Receipt Date: 20070507
  Transmission Date: 20100115
  Serious: No
  Sender: FDA-Public Use
  Company Number: US-ASTRAZENECA-2006UW23851

PATIENT
  Age: 578 Month
  Sex: Female
  Weight: 95.7 kg

DRUGS (16)
  1. SEROQUEL [Suspect]
     Indication: DEPRESSION
     Dosage: 25 MG - 600 MG
     Route: 048
     Dates: start: 20040220
  2. SEROQUEL [Suspect]
     Indication: SLEEP DISORDER
     Dosage: 25 MG - 600 MG
     Route: 048
     Dates: start: 20040220
  3. SEROQUEL [Suspect]
     Indication: ANXIETY
     Dosage: 25 MG - 600 MG
     Route: 048
     Dates: start: 20040220
  4. SEROQUEL [Suspect]
     Route: 048
  5. SEROQUEL [Suspect]
     Route: 048
  6. SEROQUEL [Suspect]
     Route: 048
  7. ZYPREXA [Suspect]
     Route: 048
     Dates: start: 20010809
  8. CYMBALTA [Concomitant]
     Route: 065
  9. PAXIL CR [Concomitant]
     Route: 065
  10. KLONOPIN [Concomitant]
     Route: 065
  11. ATIVAN [Concomitant]
     Indication: SLEEP DISORDER
     Route: 048
  12. ROZEREM [Concomitant]
     Indication: SLEEP DISORDER
     Route: 048
  13. LUNESTA [Concomitant]
     Indication: SLEEP DISORDER
     Dosage: 1.5 MG - 3 MG
     Route: 048
  14. GLUCOPHAGE [Concomitant]
     Indication: DIABETES MELLITUS
     Route: 065
  15. LIPITOR [Concomitant]
     Indication: HYPERLIPIDAEMIA
     Route: 065
  16. ACTOS [Concomitant]
     Indication: DIABETES MELLITUS
     Route: 065

REACTIONS (3)
  - COUGH [None]
  - DIABETES MELLITUS [None]
  - MENOPAUSAL SYMPTOMS [None]
